FAERS Safety Report 6807400-0 (Version None)
Quarter: 2010Q2

REPORT INFORMATION
  Report Type: 
  Country: None (occurrence: None)
  Receive Date: 20100629
  Receipt Date: 20090930
  Transmission Date: 20101027
  Serious: Yes (Other)
  Sender: FDA-Public Use
  Company Number: US-PFIZER INC-2008062540

PATIENT
  Sex: Female
  Weight: 60 kg

DRUGS (6)
  1. ALPRAZOLAM [Interacting]
     Route: 048
     Dates: start: 20080201
  2. KLONOPIN [Suspect]
  3. ESTROGENS [Interacting]
  4. PAXIL [Concomitant]
     Indication: DEPRESSION
  5. PROGESTERONE [Concomitant]
  6. TESTOSTERONE [Concomitant]

REACTIONS (16)
  - ANXIETY [None]
  - CHILLS [None]
  - DEPENDENCE [None]
  - DEPRESSION [None]
  - DISCOMFORT [None]
  - DRUG DOSE OMISSION [None]
  - DRUG INEFFECTIVE [None]
  - DRUG INTERACTION [None]
  - HYPOTHYROIDISM [None]
  - MEMORY IMPAIRMENT [None]
  - MUSCLE TWITCHING [None]
  - NAUSEA [None]
  - NERVOUSNESS [None]
  - POLLAKIURIA [None]
  - THERAPEUTIC RESPONSE UNEXPECTED [None]
  - TREMOR [None]
